FAERS Safety Report 11836775 (Version 2)
Quarter: 2016Q1

REPORT INFORMATION
  Report Type: Spontaneous
  Country: None (occurrence: US)
  Receive Date: 20151215
  Receipt Date: 20160126
  Transmission Date: 20160525
  Serious: No
  Sender: FDA-Public Use
  Company Number: US-RARE DISEASE THERAPEUTICS, INC.-1045496

PATIENT
  Age: 6 Year
  Sex: Male
  Weight: 23 kg

DRUGS (6)
  1. CALCIUM [Concomitant]
     Active Substance: CALCIUM
     Dates: start: 2013
  2. CYSTADANE [Suspect]
     Active Substance: BETAINE
     Indication: VITAMIN B12 DEFICIENCY
     Route: 048
     Dates: start: 20140708
  3. LEVETIRACETAM. [Concomitant]
     Active Substance: LEVETIRACETAM
     Dates: start: 2011
  4. ONFI [Concomitant]
     Active Substance: CLOBAZAM
     Dates: start: 2012
  5. HYDROXOCOBALAMIN [Concomitant]
     Active Substance: HYDROXOCOBALAMIN
     Dates: start: 2008
  6. L-CARNITINE [Concomitant]
     Active Substance: LEVOCARNITINE
     Dates: start: 2008

REACTIONS (2)
  - Gastroenteritis viral [Unknown]
  - Overdose [Unknown]

NARRATIVE: CASE EVENT DATE: 20150503
